FAERS Safety Report 7307223 (Version 4)
Quarter: 2013Q3

REPORT INFORMATION
  Report Type: Report from Study
  Country: US (occurrence: US)
  Receive Date: 20100305
  Receipt Date: 20130815
  Transmission Date: 20140515
  Serious: Yes (Hospitalization)
  Sender: FDA-Public Use
  Company Number: US-ABBOTT-10P-163-0629463-00

PATIENT
  Age: 33 Year
  Sex: Female

DRUGS (13)
  1. HUMIRA [Suspect]
     Indication: PSORIASIS
     Route: 058
     Dates: start: 20080523
  2. HUMIRA [Suspect]
     Route: 058
     Dates: start: 20091205, end: 20091219
  3. ALL OTHER NON-THERAPEUTIC PRODUCTS [Concomitant]
     Indication: PSORIASIS
     Dosage: 1 TREATMENT
     Dates: start: 200810
  4. TACLONEX [Concomitant]
     Indication: PSORIASIS
     Dates: start: 20080606
  5. COAL TAR [Concomitant]
     Indication: PSORIASIS
     Dates: start: 2007
  6. FOLIC ACID [Concomitant]
     Indication: PSORIASIS
     Dates: start: 20080510
  7. CLOBEX [Concomitant]
     Indication: PSORIASIS
     Dosage: 1 SPRAY
     Dates: start: 20080510
  8. LACHYDRIN [Concomitant]
     Indication: PSORIASIS
     Dates: start: 20090416
  9. DOVONEX [Concomitant]
     Indication: PSORIASIS
     Dates: start: 2008
  10. UREA [Concomitant]
     Indication: PSORIASIS
     Dates: start: 20080904
  11. SERTRALINE [Concomitant]
     Indication: DEPRESSION
     Dates: start: 1987
  12. MARVELON [Concomitant]
     Indication: CONTRACEPTION
     Dates: start: 1999, end: 20091223
  13. CLINDAMYCIN [Concomitant]
     Indication: ACNE
     Dates: start: 20100121

REACTIONS (1)
  - Complication of pregnancy [Not Recovered/Not Resolved]
